FAERS Safety Report 12967979 (Version 1)
Quarter: 2016Q4

REPORT INFORMATION
  Report Type: Spontaneous
  Country: US (occurrence: US)
  Receive Date: 20161123
  Receipt Date: 20161123
  Transmission Date: 20170207
  Serious: No
  Sender: FDA-Public Use
  Company Number: US-TEVA-688228USA

PATIENT
  Sex: Male

DRUGS (1)
  1. FOSINOPRIL [Suspect]
     Active Substance: FOSINOPRIL
     Indication: HYPERTENSION
     Dosage: 10 MILLIGRAM DAILY;
     Route: 048
     Dates: start: 2010

REACTIONS (3)
  - Drug ineffective [Unknown]
  - Chest discomfort [Unknown]
  - Blood pressure increased [Unknown]
